FAERS Safety Report 12988250 (Version 3)
Quarter: 2017Q1

REPORT INFORMATION
  Report Type: Spontaneous
  Country: CA (occurrence: CA)
  Receive Date: 20161130
  Receipt Date: 20170116
  Transmission Date: 20170428
  Serious: Yes (Other)
  Sender: FDA-Public Use
  Company Number: PHHY2016CA160780

PATIENT
  Age: 65 Year
  Sex: Male

DRUGS (3)
  1. ADVIL [Concomitant]
     Active Substance: IBUPROFEN
     Indication: ARTHRITIS
     Route: 065
  2. TYLENOL [Concomitant]
     Active Substance: ACETAMINOPHEN
     Indication: ARTHRITIS
     Dosage: PRN
     Route: 065
  3. TAMSULOSIN SANDOZ [Suspect]
     Active Substance: TAMSULOSIN
     Indication: BENIGN PROSTATIC HYPERPLASIA
     Dosage: 0.4 MG, QD
     Route: 048

REACTIONS (4)
  - Flank pain [Not Recovered/Not Resolved]
  - Urinary tract obstruction [Not Recovered/Not Resolved]
  - Testicular pain [Not Recovered/Not Resolved]
  - Renal pain [Not Recovered/Not Resolved]

NARRATIVE: CASE EVENT DATE: 201602
